FAERS Safety Report 9797597 (Version 1)
Quarter: 2014Q1

REPORT INFORMATION
  Report Type: Spontaneous
  Country: CN (occurrence: CN)
  Receive Date: 20140106
  Receipt Date: 20140106
  Transmission Date: 20141002
  Serious: Yes (Death)
  Sender: FDA-Public Use
  Company Number: CN-ROCHE-1329536

PATIENT
  Age: 7 Year
  Sex: Female

DRUGS (2)
  1. CEFTRIAXONE SODIUM [Suspect]
     Indication: UPPER RESPIRATORY TRACT INFECTION
     Route: 042
     Dates: start: 20131130
  2. SODIUM CHLORIDE [Concomitant]
     Route: 065

REACTIONS (3)
  - Death [Fatal]
  - Cough [Unknown]
  - Vomiting [Unknown]
